FAERS Safety Report 15042399 (Version 1)
Quarter: 2018Q2

REPORT INFORMATION
  Report Type: Spontaneous
  Country: US (occurrence: US)
  Receive Date: 20180531
  Receipt Date: 20180531
  Transmission Date: 20180711
  Serious: Yes (Life-Threatening, Hospitalization, Disabling, Other)
  Sender: FDA-Public Use
  Company Number: None

PATIENT
  Age: 76 Year
  Sex: Male
  Weight: 122.47 kg

DRUGS (21)
  1. XARELTO [Suspect]
     Active Substance: RIVAROXABAN
     Indication: ATRIAL FIBRILLATION
     Dosage: ?          QUANTITY:1 DF DOSAGE FORM;?
     Route: 048
     Dates: start: 20180330, end: 20180426
  2. METOPROLOL. [Concomitant]
     Active Substance: METOPROLOL
  3. ASPIRIN EC [Concomitant]
     Active Substance: ASPIRIN
  4. INSULIN LISPRO (HUMALOG) [Concomitant]
  5. ALLOPURINOL. [Concomitant]
     Active Substance: ALLOPURINOL
  6. AMLODIPINE [Concomitant]
     Active Substance: AMLODIPINE BESYLATE
  7. 2% DICLOFENAC SODIUM TOPICAL LIQUID (PENNSAID) [Concomitant]
  8. GENERIC MATURE MULTIVITAMIN [Concomitant]
  9. TRIAMCINOLONE ACETONIDE CREAM (KENALOG) [Concomitant]
  10. VITAMIN D3 [Concomitant]
     Active Substance: CHOLECALCIFEROL
  11. TERAZOCIN (HYTRIN) [Concomitant]
  12. CALCIUM ACETATE (PHOSLO) [Concomitant]
  13. VITAMIN C [Concomitant]
     Active Substance: ASCORBIC ACID
  14. ZANAFLEX [Concomitant]
     Active Substance: TIZANIDINE HYDROCHLORIDE
  15. COLCHICINE. [Concomitant]
     Active Substance: COLCHICINE
  16. LASIX [Concomitant]
     Active Substance: FUROSEMIDE
  17. INSULIN DETERMIR (LEVEMIR) [Concomitant]
  18. SODIUM BICARBONATE. [Concomitant]
     Active Substance: SODIUM BICARBONATE
  19. CALCITRIOL (ROCALTROL0 [Concomitant]
  20. FERROUS FUMARATE (FERROCITE) [Concomitant]
  21. LYRICA [Concomitant]
     Active Substance: PREGABALIN

REACTIONS (1)
  - Intestinal haemorrhage [None]

NARRATIVE: CASE EVENT DATE: 20180427
